FAERS Safety Report 6739279-X (Version None)
Quarter: 2010Q2

REPORT INFORMATION
  Report Type: 
  Country: None (occurrence: None)
  Receive Date: 20100524
  Receipt Date: 20100524
  Transmission Date: 20101027
  Serious: Yes (Hospitalization)
  Sender: FDA-Public Use
  Company Number: None

PATIENT
  Sex: Male
  Weight: 81.5 kg

DRUGS (10)
  1. TORISEL [Suspect]
     Indication: PROSTATE CANCER
     Dosage: 25 MG QWEEK IV
     Route: 042
     Dates: start: 20091112, end: 20100520
  2. PROCRIT [Concomitant]
  3. DIPHENHYDRAMINE HCL [Concomitant]
  4. AMBIEN [Concomitant]
  5. PHENAZOPRIDINE HCL [Concomitant]
  6. LUPRON [Concomitant]
  7. NORCO [Concomitant]
  8. LIPITOR [Concomitant]
  9. LISINOPRIL [Concomitant]
  10. MEGACE [Concomitant]

REACTIONS (5)
  - ANAEMIA [None]
  - LUNG NEOPLASM [None]
  - PAIN [None]
  - PERICARDIAL EFFUSION [None]
  - PLEURAL EFFUSION [None]
